FAERS Safety Report 15496494 (Version 2)
Quarter: 2018Q4

REPORT INFORMATION
  Report Type: Spontaneous
  Country: US (occurrence: US)
  Receive Date: 20181012
  Receipt Date: 20181116
  Transmission Date: 20190205
  Serious: Yes (Other)
  Sender: FDA-Public Use
  Company Number: US-CLOVIS ONCOLOGY-CLO-2018-001403

PATIENT
  Sex: Female

DRUGS (1)
  1. RUBRACA [Suspect]
     Active Substance: RUCAPARIB CAMSYLATE
     Indication: OVARIAN CANCER
     Dosage: 600 MG, BID
     Dates: start: 201807, end: 20181003

REACTIONS (3)
  - Drug ineffective [Unknown]
  - Adverse drug reaction [Unknown]
  - Pelvic neoplasm [Unknown]

NARRATIVE: CASE EVENT DATE: 2018
